FAERS Safety Report 19031378 (Version 1)
Quarter: 2021Q1

REPORT INFORMATION
  Report Type: Spontaneous
  Country: US (occurrence: US)
  Receive Date: 20210317
  Receipt Date: 20210317
  Transmission Date: 20210420
  Serious: Yes (Other)
  Sender: FDA-Public Use
  Company Number: None

PATIENT
  Age: 62 Year
  Sex: Female

DRUGS (8)
  1. FUROSEMIDE. [Concomitant]
     Active Substance: FUROSEMIDE
  2. OPSUMIT [Suspect]
     Active Substance: MACITENTAN
     Indication: PULMONARY HYPERTENSION
     Route: 048
     Dates: start: 20181130
  3. DULOXETINE. [Concomitant]
     Active Substance: DULOXETINE
  4. ALLOPURINOL. [Concomitant]
     Active Substance: ALLOPURINOL
  5. NORCO [Concomitant]
     Active Substance: ACETAMINOPHEN\HYDROCODONE BITARTRATE
  6. OXYGEN INTRANASAL [Concomitant]
  7. SILDENAFIL. [Concomitant]
     Active Substance: SILDENAFIL
  8. VITAMIN D3 [Concomitant]
     Active Substance: CHOLECALCIFEROL

REACTIONS (3)
  - Back pain [None]
  - Hypoxia [None]
  - Sciatica [None]

NARRATIVE: CASE EVENT DATE: 20210212
